FAERS Safety Report 6468961-7 (Version None)
Quarter: 2009Q4

REPORT INFORMATION
  Report Type: 
  Country: None (occurrence: None)
  Receive Date: 20091203
  Receipt Date: 20090805
  Transmission Date: 20100525
  Serious: Yes (Death, Other)
  Sender: FDA-Public Use
  Company Number: JP-ELI_LILLY_AND_COMPANY-JP_030500889

PATIENT
  Sex: Male
  Weight: 57.5 kg

DRUGS (2)
  1. GEMZAR [Suspect]
     Indication: PANCREATIC CARCINOMA STAGE IV
     Dosage: 1600 MG, OTHER
     Route: 042
     Dates: start: 20010703, end: 20020924
  2. GLIBENCLAMIDE [Concomitant]
     Indication: DIABETES MELLITUS
     Dosage: 7.5 MG, DAILY (1/D)
     Route: 048
     Dates: start: 19990101

REACTIONS (6)
  - ASCITES [None]
  - DISEASE PROGRESSION [None]
  - HAEMOGLOBIN DECREASED [None]
  - RENAL FAILURE ACUTE [None]
  - SMALL INTESTINAL HAEMORRHAGE [None]
  - TUBULOINTERSTITIAL NEPHRITIS [None]
